FAERS Safety Report 7888910-4 (Version None)
Quarter: 2011Q4

REPORT INFORMATION
  Report Type: 
  Country: None (occurrence: None)
  Receive Date: 20111101
  Receipt Date: 20111018
  Transmission Date: 20120403
  Serious: Yes (Life-Threatening, Hospitalization)
  Sender: FDA-Public Use
  Company Number: WAES 1109USA01224

PATIENT
  Age: 63 Year
  Sex: Male

DRUGS (5)
  1. AMARYL [Concomitant]
  2. CANDESARTAN CILEXETIL [Concomitant]
  3. ACTOS [Concomitant]
  4. METFORMIN HCL [Concomitant]
  5. JANUVIA [Suspect]
     Indication: TYPE 2 DIABETES MELLITUS
     Dosage: 50 MG/DAILY PO
     Route: 048
     Dates: start: 20100818, end: 20110209

REACTIONS (4)
  - PANCREATIC CARCINOMA [None]
  - GLYCOSYLATED HAEMOGLOBIN INCREASED [None]
  - BLOOD GLUCOSE INCREASED [None]
  - JAUNDICE [None]
